FAERS Safety Report 5156829-8 (Version None)
Quarter: 2006Q4

REPORT INFORMATION
  Report Type: 
  Country: None (occurrence: None)
  Receive Date: 20061114
  Receipt Date: 20061107
  Transmission Date: 20070319
  Serious: Yes (Other)
  Sender: FDA-Public Use
  Company Number: HQWYE936109NOV06

PATIENT
  Age: 61 Year
  Sex: Male

DRUGS (6)
  1. RAPAMUNE [Suspect]
     Indication: PROPHYLAXIS AGAINST TRANSPLANT REJECTION
     Dosage: 2 MG ORAL
     Route: 048
     Dates: start: 20040323
  2. ASPIRIN [Concomitant]
  3. FAMVIR [Concomitant]
  4. FLUVASTATIN (FLUVASTATIN) [Concomitant]
  5. RAMIPRIL [Concomitant]
  6. METOPROLOL SUCCINATE [Concomitant]

REACTIONS (1)
  - METASTATIC NEOPLASM [None]
